FAERS Safety Report 18300314 (Version 1)
Quarter: 2020Q3

REPORT INFORMATION
  Report Type: Spontaneous
  Country: US (occurrence: US)
  Receive Date: 20200923
  Receipt Date: 20200923
  Transmission Date: 20201103
  Serious: Yes (Hospitalization, Other)
  Sender: FDA-Public Use
  Company Number: US-IMMUNOMEDICS, INC.-2020IMMU000559

PATIENT
  Sex: Female

DRUGS (6)
  1. TRODELVY [Suspect]
     Active Substance: SACITUZUMAB GOVITECAN-HZIY
     Dosage: UNK
     Route: 065
     Dates: start: 20200707, end: 20200707
  2. TRODELVY [Suspect]
     Active Substance: SACITUZUMAB GOVITECAN-HZIY
     Indication: TRIPLE NEGATIVE BREAST CANCER
     Dosage: UNK
     Route: 065
     Dates: start: 20200522, end: 20200522
  3. TRODELVY [Suspect]
     Active Substance: SACITUZUMAB GOVITECAN-HZIY
     Dosage: UNK
     Route: 065
     Dates: start: 20200630, end: 20200630
  4. TRODELVY [Suspect]
     Active Substance: SACITUZUMAB GOVITECAN-HZIY
     Dosage: UNK
     Route: 065
     Dates: start: 20200811, end: 20200811
  5. TRODELVY [Suspect]
     Active Substance: SACITUZUMAB GOVITECAN-HZIY
     Dosage: UNK
     Route: 065
     Dates: start: 20200603, end: 20200603
  6. TRODELVY [Suspect]
     Active Substance: SACITUZUMAB GOVITECAN-HZIY
     Dosage: UNK
     Route: 065
     Dates: start: 20200819, end: 20200819

REACTIONS (4)
  - Diarrhoea [Unknown]
  - Breast mass [Unknown]
  - Herpes zoster [Not Recovered/Not Resolved]
  - COVID-19 [Unknown]

NARRATIVE: CASE EVENT DATE: 202007
